FAERS Safety Report 5291877-9 (Version None)
Quarter: 2007Q2

REPORT INFORMATION
  Report Type: 
  Country: None (occurrence: None)
  Receive Date: 20070403
  Receipt Date: 20070322
  Transmission Date: 20071010
  Serious: Yes (Other)
  Sender: FDA-Public Use
  Company Number: CHPA2007US04077

PATIENT
  Age: 47 Year
  Sex: Female

DRUGS (1)
  1. TRANSDERM SCOP [Suspect]
     Indication: MOTION SICKNESS
     Dosage: 1.5 MG, Q72H, TRANSDERMAL
     Route: 062

REACTIONS (11)
  - DEHYDRATION [None]
  - DELUSIONAL PERCEPTION [None]
  - DRY MOUTH [None]
  - DYSPHAGIA [None]
  - FATIGUE [None]
  - HALLUCINATION [None]
  - MALAISE [None]
  - NERVOUSNESS [None]
  - SYNCOPE [None]
  - VISION BLURRED [None]
  - VOMITING [None]
